FAERS Safety Report 11545069 (Version 1)
Quarter: 2015Q3

REPORT INFORMATION
  Report Type: Report from Study
  Country: US (occurrence: US)
  Receive Date: 20150924
  Receipt Date: 20150924
  Transmission Date: 20151125
  Serious: Yes (Hospitalization)
  Sender: FDA-Public Use
  Company Number: US-BIOGENIDEC-2015BI128778

PATIENT
  Age: 56 Year
  Sex: Male

DRUGS (7)
  1. CENTRAVITES 50 PLUS [Concomitant]
  2. VENLAFAXINE HCI ER [Concomitant]
  3. TECFIDERA [Suspect]
     Active Substance: DIMETHYL FUMARATE
     Indication: MULTIPLE SCLEROSIS
     Route: 048
     Dates: start: 20150209
  4. VITAMIN D3 [Concomitant]
     Active Substance: CHOLECALCIFEROL
  5. VALIUM [Concomitant]
     Active Substance: DIAZEPAM
  6. OXYCODONE HCI [Concomitant]
  7. FENTANYL. [Concomitant]
     Active Substance: FENTANYL

REACTIONS (4)
  - Fall [Unknown]
  - Hip fracture [Unknown]
  - Procedural haemorrhage [Unknown]
  - Blood viscosity increased [Unknown]

NARRATIVE: CASE EVENT DATE: 20150901
